FAERS Safety Report 9549405 (Version 6)
Quarter: 2014Q2

REPORT INFORMATION
  Report Type: Spontaneous
  Country: US (occurrence: US)
  Receive Date: 20130924
  Receipt Date: 20140610
  Transmission Date: 20141212
  Serious: Yes (Hospitalization, Other)
  Sender: FDA-Public Use
  Company Number: US-PFIZER INC-2013271453

PATIENT
  Age: 86 Year
  Sex: Female
  Weight: 55.78 kg

DRUGS (11)
  1. METOPROLOL TARTRATE [Suspect]
     Indication: HYPERTENSION
     Dosage: 25 MG, DAILY
     Route: 048
     Dates: start: 2013, end: 201309
  2. PROCARDIA XL [Interacting]
     Indication: CARDIAC DISORDER
     Dosage: 90 MG, DAILY
     Dates: start: 20060302
  3. PROCARDIA XL [Interacting]
     Indication: HYPERTENSION
     Dosage: UNK
  4. ACCUPRIL [Interacting]
     Indication: HYPERTENSION
     Dosage: 25 MG (5 MG AND 20 MG TABLETS), DAILY
     Route: 048
  5. ASPIRIN [Interacting]
     Indication: CARDIAC DISORDER
     Dosage: 81 MG, DAILY
  6. GLUCOPHAGE [Interacting]
     Indication: DIABETES MELLITUS
     Dosage: 500 MG, 2X/DAY
  7. TOPROL XL [Interacting]
     Dosage: 25 MG, UNK
  8. BETAMETHASONE [Concomitant]
     Dosage: 0.1 %, AS NEEDED
  9. VITAMIN D [Concomitant]
     Dosage: 1000 IU, DAILY
  10. CALCIUM CITRATE [Concomitant]
     Dosage: 600 MG, 2X/DAY
  11. METFORMIN [Concomitant]
     Dosage: 500 MG, 2X/DAY

REACTIONS (6)
  - Drug interaction [Unknown]
  - Malaise [Unknown]
  - Blood glucose increased [Unknown]
  - Colitis ischaemic [Recovering/Resolving]
  - Sinus bradycardia [Not Recovered/Not Resolved]
  - Atrioventricular dissociation [Unknown]
